FAERS Safety Report 7051605-3 (Version None)
Quarter: 2010Q4

REPORT INFORMATION
  Report Type: 
  Country: None (occurrence: None)
  Receive Date: 20101019
  Receipt Date: 20101006
  Transmission Date: 20110411
  Serious: Yes (Hospitalization)
  Sender: FDA-Public Use
  Company Number: ES-ROCHE-731764

PATIENT
  Sex: Male
  Weight: 70 kg

DRUGS (4)
  1. BEVACIZUMAB [Suspect]
     Dosage: LAST DOSE: 23 SEP 2010 TEMPORARILY INTERRUPTED FORM: INFUSION
     Route: 042
     Dates: start: 20090401, end: 20101005
  2. FLUOROURACIL [Suspect]
     Dosage: FORM: BOLUS DATE OF LAST DOSE: 23 SEP 2010 TEMPORARILY INTERRUPTED
     Route: 042
     Dates: start: 20090401, end: 20101005
  3. LEUCOVORIN CALCIUM [Suspect]
     Dosage: TEMPORARILY INTERRUPTED FORM: INFUSION
     Route: 042
     Dates: start: 20090401, end: 20101005
  4. IRINOTECAN HCL [Suspect]
     Dosage: LAST DOSE: 22 OCT 2010 TEMPORARILY INTERRUPTED FORM: INFUSION
     Route: 042
     Dates: start: 20090401, end: 20101005

REACTIONS (1)
  - GASTROINTESTINAL OBSTRUCTION [None]
